FAERS Safety Report 19168984 (Version 1)
Quarter: 2021Q2

REPORT INFORMATION
  Report Type: Report from Study
  Country: CA (occurrence: CA)
  Receive Date: 20210422
  Receipt Date: 20210422
  Transmission Date: 20210717
  Serious: Yes (Other)
  Sender: FDA-Public Use
  Company Number: PHHY2015CA080112

PATIENT
  Age: 34 Year
  Sex: Male

DRUGS (3)
  1. GILENYA [Suspect]
     Active Substance: FINGOLIMOD HYDROCHLORIDE
     Indication: RELAPSING-REMITTING MULTIPLE SCLEROSIS
     Dosage: 0.5 MG, QD
     Route: 048
     Dates: start: 20150630
  2. AMANTADINE. [Concomitant]
     Active Substance: AMANTADINE HYDROCHLORIDE
     Indication: PRODUCT USED FOR UNKNOWN INDICATION
     Dosage: 100 MG, BID
     Route: 048
  3. GABAPENTIN. [Concomitant]
     Active Substance: GABAPENTIN
     Indication: PRODUCT USED FOR UNKNOWN INDICATION
     Dosage: 900 MG, QHS
     Route: 048

REACTIONS (15)
  - Vision blurred [Unknown]
  - Muscular weakness [Unknown]
  - Eye irritation [Unknown]
  - Eye pruritus [Unknown]
  - Asthenia [Unknown]
  - Expanded disability status scale score increased [Unknown]
  - Heart rate decreased [Unknown]
  - Fatigue [Unknown]
  - Blepharitis [Unknown]
  - Dry eye [Unknown]
  - Blood pressure systolic increased [Unknown]
  - Multiple sclerosis relapse [Unknown]
  - Pain [Unknown]
  - Ocular discomfort [Recovered/Resolved]
  - Gait disturbance [Unknown]

NARRATIVE: CASE EVENT DATE: 201612
